FAERS Safety Report 4880107-5 (Version None)
Quarter: 2006Q1

REPORT INFORMATION
  Report Type: 
  Country: None (occurrence: None)
  Receive Date: 20060113
  Receipt Date: 20051208
  Transmission Date: 20060701
  Serious: Yes (Other)
  Sender: FDA-Public Use
  Company Number: CH-BRISTOL-MYERS SQUIBB COMPANY-13246624

PATIENT
  Age: 56 Year
  Sex: Male

DRUGS (5)
  1. ENDOXAN [Suspect]
     Indication: B-CELL LYMPHOMA
     Route: 040
     Dates: start: 20050101, end: 20050101
  2. ONCOVIN [Suspect]
     Indication: B-CELL LYMPHOMA
     Route: 040
     Dates: start: 20050101, end: 20050101
  3. MABTHERA [Suspect]
     Indication: B-CELL LYMPHOMA
     Route: 040
     Dates: start: 20050101, end: 20050101
  4. FARMORUBICIN [Suspect]
     Indication: B-CELL LYMPHOMA
     Route: 040
     Dates: start: 20050101, end: 20050101
  5. PREDNISONE [Concomitant]
     Dates: start: 20050101, end: 20050101

REACTIONS (3)
  - ATROPHY [None]
  - PARALYSIS [None]
  - POLYNEUROPATHY [None]
